FAERS Safety Report 16201158 (Version 1)
Quarter: 2019Q2

REPORT INFORMATION
  Report Type: Spontaneous
  Country: PT (occurrence: PT)
  Receive Date: 20190416
  Receipt Date: 20190416
  Transmission Date: 20190711
  Serious: Yes (Hospitalization, Other)
  Sender: FDA-Public Use
  Company Number: PT-BRISTOL-MYERS SQUIBB COMPANY-BMS-2019-034350

PATIENT
  Age: 65 Year
  Sex: Female

DRUGS (4)
  1. FUROSEMIDE. [Suspect]
     Active Substance: FUROSEMIDE
     Indication: PRODUCT USED FOR UNKNOWN INDICATION
     Dosage: UNK
     Route: 065
  2. PERINDOPRIL [Suspect]
     Active Substance: PERINDOPRIL
     Indication: PRODUCT USED FOR UNKNOWN INDICATION
     Dosage: UNK
     Route: 065
  3. AMIODARONE [Suspect]
     Active Substance: AMIODARONE
     Indication: PRODUCT USED FOR UNKNOWN INDICATION
     Dosage: UNK
     Route: 065
  4. WARFARIN SODIUM. [Suspect]
     Active Substance: WARFARIN SODIUM
     Indication: PRODUCT USED FOR UNKNOWN INDICATION
     Dosage: UNK
     Route: 065

REACTIONS (16)
  - Retroperitoneal haematoma [Unknown]
  - Mobility decreased [Unknown]
  - Ecchymosis [Unknown]
  - Normochromic anaemia [Recovering/Resolving]
  - Haemodynamic instability [Unknown]
  - Hypertension [Unknown]
  - Factor VIII deficiency [Recovering/Resolving]
  - Peripheral swelling [Unknown]
  - Left ventricular failure [Unknown]
  - Groin pain [Unknown]
  - Prothrombin time prolonged [Unknown]
  - Tachycardia [Unknown]
  - Fluid overload [Unknown]
  - Acquired haemophilia [Recovering/Resolving]
  - Activated partial thromboplastin time prolonged [Recovering/Resolving]
  - Oliguria [Unknown]
